FAERS Safety Report 5803845-6 (Version None)
Quarter: 2008Q3

REPORT INFORMATION
  Report Type: 
  Country: None (occurrence: None)
  Receive Date: 20080708
  Receipt Date: 20080702
  Transmission Date: 20090109
  Serious: Yes (Death)
  Sender: FDA-Public Use
  Company Number: CA-BOEHRINGER INGELHEIM GMBH, GERMANY-2008-CN-00309CN

PATIENT
  Sex: Male

DRUGS (3)
  1. CATAPRES [Suspect]
     Indication: PAIN MANAGEMENT
     Route: 037
     Dates: start: 20080422
  2. MORPHINE [Concomitant]
  3. METADOL [Concomitant]

REACTIONS (1)
  - METASTATIC NEOPLASM [None]
